FAERS Safety Report 12601858 (Version 2)
Quarter: 2016Q3

REPORT INFORMATION
  Report Type: Report from Study
  Country: US (occurrence: US)
  Receive Date: 20160728
  Receipt Date: 20160819
  Transmission Date: 20161109
  Serious: Yes (Death, Hospitalization)
  Sender: FDA-Public Use
  Company Number: US-JNJFOC-20160721094

PATIENT
  Sex: Male

DRUGS (11)
  1. ISOSORBIDE DN [Concomitant]
  2. NOVOLOG [Concomitant]
     Active Substance: INSULIN ASPART
     Dosage: 100 UNIT/ML CARTRIDGE
  3. XARELTO [Concomitant]
     Active Substance: RIVAROXABAN
  4. SOTALOL. [Concomitant]
     Active Substance: SOTALOL
  5. ENALAPRIL MALEATE. [Concomitant]
     Active Substance: ENALAPRIL MALEATE
  6. CETIRIZINE HCL [Concomitant]
     Active Substance: CETIRIZINE HYDROCHLORIDE
  7. CARVEDILOL. [Concomitant]
     Active Substance: CARVEDILOL
  8. LANTUS [Concomitant]
     Active Substance: INSULIN GLARGINE
     Dosage: 100 UNIT/ML VIAL
  9. NITROGLYCERIN. [Concomitant]
     Active Substance: NITROGLYCERIN
     Dosage: 0.4 MG PER HOUR
  10. CILOSTAZOL. [Concomitant]
     Active Substance: CILOSTAZOL
  11. IMBRUVICA [Suspect]
     Active Substance: IBRUTINIB
     Indication: CHRONIC LYMPHOCYTIC LEUKAEMIA
     Route: 048
     Dates: start: 20160624

REACTIONS (3)
  - Death [Fatal]
  - Blood count abnormal [Unknown]
  - Myocardial infarction [Unknown]

NARRATIVE: CASE EVENT DATE: 2016
